FAERS Safety Report 12140172 (Version 1)
Quarter: 2016Q1

REPORT INFORMATION
  Report Type: Report from Study
  Country: CO (occurrence: CO)
  Receive Date: 20160303
  Receipt Date: 20160303
  Transmission Date: 20160526
  Serious: Yes (Death, Hospitalization)
  Sender: FDA-Public Use
  Company Number: CO-ABBVIE-16K-036-1571572-00

PATIENT
  Age: 73 Year
  Sex: Female
  Weight: 68 kg

DRUGS (1)
  1. ZEMPLAR [Suspect]
     Active Substance: PARICALCITOL
     Indication: HYPERPARATHYROIDISM SECONDARY
     Route: 048
     Dates: start: 20151001, end: 20151031

REACTIONS (4)
  - Coronary artery occlusion [Fatal]
  - Cardio-respiratory arrest [Fatal]
  - Cardiogenic shock [Fatal]
  - Post procedural oedema [Fatal]

NARRATIVE: CASE EVENT DATE: 20160131
